FAERS Safety Report 13171979 (Version 1)
Quarter: 2017Q1

REPORT INFORMATION
  Report Type: Spontaneous
  Country: SK (occurrence: SK)
  Receive Date: 20170131
  Receipt Date: 20170131
  Transmission Date: 20170428
  Serious: Yes (Death)
  Sender: FDA-Public Use
  Company Number: PHHY2017SK007498

PATIENT
  Age: 36 Year
  Sex: Female

DRUGS (1)
  1. DIENOGEST, ETHINYLESTRADIOL [Suspect]
     Active Substance: DIENOGEST\ETHINYL ESTRADIOL
     Indication: MENSTRUATION IRREGULAR
     Dosage: 2 MG, ONCE/SINGLE
     Route: 048
     Dates: start: 201609, end: 201612

REACTIONS (2)
  - Off label use [Unknown]
  - Pulmonary embolism [Fatal]
